FAERS Safety Report 9994792 (Version 2)
Quarter: 2014Q2

REPORT INFORMATION
  Report Type: Spontaneous
  Country: US (occurrence: US)
  Receive Date: 20140311
  Receipt Date: 20140429
  Transmission Date: 20141212
  Serious: No
  Sender: FDA-Public Use
  Company Number: US-JNJFOC-20140217495

PATIENT
  Age: 60 Year
  Sex: Male
  Weight: 83.01 kg

DRUGS (5)
  1. DURAGESIC [Suspect]
     Indication: PAIN
     Route: 062
     Dates: start: 2013
  2. LYRICA [Concomitant]
     Route: 065
  3. NABUTONE [Concomitant]
     Route: 065
  4. HYDROCODONE/ ACETAMINOPHEN [Concomitant]
     Dosage: 10/325 MG
     Route: 065
  5. SIMVASTATIN [Concomitant]
     Route: 065

REACTIONS (4)
  - Wrong technique in drug usage process [Unknown]
  - Wrong technique in drug usage process [Unknown]
  - Product quality issue [Unknown]
  - Product quality issue [Unknown]
